FAERS Safety Report 4943248-X (Version None)
Quarter: 2006Q1

REPORT INFORMATION
  Report Type: 
  Country: None (occurrence: None)
  Receive Date: 20060216
  Receipt Date: 20060209
  Transmission Date: 20060701
  Serious: Yes (Other)
  Sender: FDA-Public Use
  Company Number: 200610041BBE

PATIENT
  Sex: Male
  Weight: 83.9154 kg

DRUGS (2)
  1. GAMASTAN [Suspect]
     Indication: RHINITIS
     Dosage: INTRAMUSCULAR
     Route: 030
     Dates: start: 20050101
  2. GAMASTAN [Suspect]
     Indication: RHINITIS
     Dosage: INTRAMUSCULAR
     Route: 030
     Dates: start: 20060126

REACTIONS (2)
  - ARTHRITIS INFECTIVE [None]
  - EPSTEIN-BARR VIRUS INFECTION [None]
